FAERS Safety Report 16829088 (Version 1)
Quarter: 2019Q3

REPORT INFORMATION
  Report Type: Spontaneous
  Country: CN (occurrence: CN)
  Receive Date: 20190919
  Receipt Date: 20190919
  Transmission Date: 20191005
  Serious: Yes (Hospitalization)
  Sender: FDA-Public Use
  Company Number: CN-FRESENIUS KABI-FK201910261

PATIENT
  Age: 67 Year
  Sex: Female

DRUGS (2)
  1. BORTEZOMIB. [Concomitant]
     Active Substance: BORTEZOMIB
     Indication: PLASMA CELL MYELOMA
     Dosage: 1,3 MG/M2 (D1,4,8,11)
     Route: 065
  2. DEXAMETHASONE INJECTION (MANUFACTURER UNKNOWN) [Suspect]
     Active Substance: DEXAMETHASONE
     Indication: PLASMA CELL MYELOMA
     Dosage: D1-2,4-5,8-9,11-12
     Route: 065

REACTIONS (3)
  - Condition aggravated [Recovered/Resolved]
  - Adrenocortical insufficiency acute [Recovered/Resolved]
  - Hypoglycaemia [Recovered/Resolved]
